FAERS Safety Report 5155366-4 (Version None)
Quarter: 2006Q4

REPORT INFORMATION
  Report Type: 
  Country: None (occurrence: None)
  Receive Date: 20061114
  Receipt Date: 20061030
  Transmission Date: 20070319
  Serious: Yes (Death)
  Sender: FDA-Public Use
  Company Number: 2006MP001157

PATIENT
  Age: 79 Year
  Sex: Female
  Weight: 52.1637 kg

DRUGS (22)
  1. DACOGEN [Suspect]
     Indication: MYELODYSPLASTIC SYNDROME
     Dosage: 30 MG;QD;IV
     Route: 042
     Dates: start: 20061012, end: 20061013
  2. LIPITOR/0132610 [Concomitant]
  3. SYNTHROID [Concomitant]
  4. SINGULAIR [Concomitant]
  5. DEMADEX [Concomitant]
  6. DURATEARS [Concomitant]
  7. PROTONIX [Concomitant]
  8. ALBUTEROL [Concomitant]
  9. ATROVENT [Concomitant]
  10. FLOVENT [Concomitant]
  11. ULTRAM [Concomitant]
  12. DARVOCET [Concomitant]
  13. NEURONTIN [Concomitant]
  14. CALCIUM WITH VITAMIN D [Concomitant]
  15. TYLENOL [Concomitant]
  16. CENTRUM [Concomitant]
  17. VITAMIN B6 [Concomitant]
  18. LIDODERM [Concomitant]
  19. ARANESP [Concomitant]
  20. AVELOX [Concomitant]
  21. LASIX [Concomitant]
  22. POTASSIUM CHLORIDE [Concomitant]

REACTIONS (1)
  - ACUTE CORONARY SYNDROME [None]
